FAERS Safety Report 9204934 (Version 1)
Quarter: 2013Q2

REPORT INFORMATION
  Report Type: Spontaneous
  Country: US (occurrence: None)
  Receive Date: 20130401
  Receipt Date: 20130401
  Transmission Date: 20140414
  Serious: Yes (Life-Threatening)
  Sender: FDA-Public Use
  Company Number: None

PATIENT
  Age: 40 Year
  Sex: Male
  Weight: 123 kg

DRUGS (1)
  1. HYDROMORPHONE [Suspect]
     Indication: PAIN
     Dosage: 2 MG OTHER IV
     Route: 042
     Dates: start: 20130115, end: 20130115

REACTIONS (2)
  - Cardiac arrest [None]
  - Pulseless electrical activity [None]
